FAERS Safety Report 11998990 (Version 3)
Quarter: 2017Q4

REPORT INFORMATION
  Report Type: Report from Study
  Country: US (occurrence: US)
  Receive Date: 20160204
  Receipt Date: 20171121
  Transmission Date: 20180320
  Serious: Yes (Hospitalization)
  Sender: FDA-Public Use
  Company Number: US-BIOGEN-2013BI117768

PATIENT
  Age: 44 Year
  Sex: Male

DRUGS (6)
  1. GABAPENTIN. [Concomitant]
     Active Substance: GABAPENTIN
     Indication: PRODUCT USED FOR UNKNOWN INDICATION
  2. AVONEX [Suspect]
     Active Substance: INTERFERON BETA-1A
     Indication: RELAPSING-REMITTING MULTIPLE SCLEROSIS
     Route: 030
     Dates: start: 19961001
  3. AVONEX [Suspect]
     Active Substance: INTERFERON BETA-1A
     Route: 030
  4. NORTRIPTYLINE [Concomitant]
     Active Substance: NORTRIPTYLINE
     Indication: PRODUCT USED FOR UNKNOWN INDICATION
  5. AVONEX [Suspect]
     Active Substance: INTERFERON BETA-1A
     Route: 030
  6. AVONEX [Suspect]
     Active Substance: INTERFERON BETA-1A
     Route: 030

REACTIONS (22)
  - Respiratory arrest [Recovered/Resolved]
  - Gait disturbance [Recovered/Resolved]
  - Depression [Unknown]
  - Epilepsy [Recovered/Resolved]
  - Sleep apnoea syndrome [Unknown]
  - Musculoskeletal disorder [Recovered/Resolved]
  - Anxiety [Not Recovered/Not Resolved]
  - Pain [Not Recovered/Not Resolved]
  - Dependence on respirator [Recovered/Resolved]
  - Fall [Recovered/Resolved]
  - Visual impairment [Not Recovered/Not Resolved]
  - Blood iron increased [Not Recovered/Not Resolved]
  - Gene mutation [Recovered/Resolved]
  - Road traffic accident [Recovered/Resolved]
  - Multiple drug therapy [Unknown]
  - Hemiparesis [Not Recovered/Not Resolved]
  - Prescribed overdose [Recovered/Resolved]
  - Medical induction of coma [Recovered/Resolved]
  - Cerebral disorder [Recovered/Resolved]
  - Insomnia [Unknown]
  - Loss of consciousness [Recovered/Resolved]
  - Memory impairment [Not Recovered/Not Resolved]

NARRATIVE: CASE EVENT DATE: 200407
